FAERS Safety Report 13007900 (Version 5)
Quarter: 2017Q1

REPORT INFORMATION
  Report Type: Spontaneous
  Country: CN (occurrence: CN)
  Receive Date: 20161208
  Receipt Date: 20170113
  Transmission Date: 20170428
  Serious: Yes (Hospitalization, Other)
  Sender: FDA-Public Use
  Company Number: PHHY2016CN167519

PATIENT
  Age: 26 Year
  Sex: Female

DRUGS (9)
  1. TEGRETOL [Suspect]
     Active Substance: CARBAMAZEPINE
     Dosage: 0.5 DF, TID (STARTS DATE AND STOPPED DATE 13 NOV IN UNSPECIFIED YEAR)
     Route: 048
  2. CARBAMAZEPINE. [Suspect]
     Active Substance: CARBAMAZEPINE
     Indication: TINNITUS
     Dosage: 0.1 G, QD (STARTS DATE AND STOPPED DATE 07 NOV IN UNSPECIFIED YEAR)
     Route: 048
  3. CARBAMAZEPINE. [Suspect]
     Active Substance: CARBAMAZEPINE
     Dosage: 0.1 G, TID (STARTS DATE AND STOPPED DATE 09 NOV IN UNSPECIFIED YEAR)
     Route: 048
  4. TEGRETOL [Suspect]
     Active Substance: CARBAMAZEPINE
     Indication: TINNITUS
     Dosage: 0.5 DF, BID (STARTS DATE AND STOPPED DATE 12 NOV IN UNSPECIFIED YEAR)
     Route: 048
  5. TEGRETOL [Suspect]
     Active Substance: CARBAMAZEPINE
     Dosage: 0.5 DF, TID (STARTS DATE AND STOPPED DATE 14 NOV IN UNSPECIFIED YEAR)
     Route: 048
  6. CARBAMAZEPINE. [Suspect]
     Active Substance: CARBAMAZEPINE
     Dosage: 0.1 G, BID 0.1 G, TID (STARTS DATE AND STOPPED DATE 10 NOV IN UNSPECIFIED YEAR)
     Route: 048
  7. CARBAMAZEPINE. [Suspect]
     Active Substance: CARBAMAZEPINE
     Dosage: 0.1 G, TID (STARTS DATE AND STOPPED DATE 08 NOV IN UNSPECIFIED YEAR)
     Route: 048
  8. TEGRETOL [Suspect]
     Active Substance: CARBAMAZEPINE
     Dosage: 0.5 DF, QD (STARTS DATE 15 NOV IN UNSPECIFIED YEAR)
     Route: 048
     Dates: end: 20161115
  9. METHYLCOBALAMIN. [Concomitant]
     Active Substance: METHYLCOBALAMIN
     Indication: PRODUCT USED FOR UNKNOWN INDICATION
     Dosage: 0.5 MG, TID
     Route: 048

REACTIONS (13)
  - Stevens-Johnson syndrome [Recovered/Resolved with Sequelae]
  - Rash [Recovered/Resolved with Sequelae]
  - Liver injury [Recovered/Resolved with Sequelae]
  - Rash erythematous [Unknown]
  - Mental impairment [Not Recovered/Not Resolved]
  - Blister [Not Recovered/Not Resolved]
  - Depressed level of consciousness [Not Recovered/Not Resolved]
  - Suicidal ideation [Not Recovered/Not Resolved]
  - Insomnia [Not Recovered/Not Resolved]
  - Anxiety [Unknown]
  - Speech disorder [Not Recovered/Not Resolved]
  - Loss of consciousness [Not Recovered/Not Resolved]
  - Pyrexia [Not Recovered/Not Resolved]

NARRATIVE: CASE EVENT DATE: 20161114
